FAERS Safety Report 12377563 (Version 2)
Quarter: 2019Q1

REPORT INFORMATION
  Report Type: Spontaneous
  Country: US (occurrence: US)
  Receive Date: 20160517
  Receipt Date: 20190121
  Transmission Date: 20190417
  Serious: No
  Sender: FDA-Public Use
  Company Number: US-JNJFOC-20160404766

PATIENT
  Sex: Female
  Weight: 88.45 kg

DRUGS (9)
  1. AROMASIN [Concomitant]
     Active Substance: EXEMESTANE
     Indication: BONE CANCER
     Dosage: 25MG TABLET ONE A DAY BY MOUTH
     Route: 065
     Dates: start: 201511
  2. AROMASIN [Concomitant]
     Active Substance: EXEMESTANE
     Indication: METASTATIC LYMPHOMA
     Dosage: 25MG TABLET ONE A DAY BY MOUTH
     Route: 065
     Dates: start: 201511
  3. MUCINEX [Concomitant]
     Active Substance: GUAIFENESIN
     Indication: NASOPHARYNGITIS
     Dosage: TOOK FOR SEVEN OR EIGHT DAYS
     Route: 065
     Dates: end: 201512
  4. OMEPRAZOLE. [Concomitant]
     Active Substance: OMEPRAZOLE
     Indication: DUODENOGASTRIC REFLUX
     Dosage: TAKING FOR 20 YEARS
     Route: 065
  5. METOPROLOL. [Concomitant]
     Active Substance: METOPROLOL
     Indication: HYPERTENSION
     Route: 065
     Dates: start: 201401
  6. TYLENOL [Suspect]
     Active Substance: ACETAMINOPHEN
     Indication: GOUT
     Dosage: STARTED IN DEC 2015 OR JAN 2016.
     Route: 065
  7. BENADRYL [Concomitant]
     Active Substance: DIPHENHYDRAMINE HYDROCHLORIDE
     Indication: HYPERSENSITIVITY
     Dosage: 25MG EVERY NIGHT ;1 OR 2
     Route: 065
     Dates: start: 2012
  8. TYLENOL [Suspect]
     Active Substance: ACETAMINOPHEN
     Indication: NASOPHARYNGITIS
     Dosage: STARTED IN DEC 2015 OR JAN 2016.
     Route: 065
  9. AROMASIN [Concomitant]
     Active Substance: EXEMESTANE
     Indication: NEOPLASM MALIGNANT
     Dosage: 25MG TABLET ONE A DAY BY MOUTH
     Route: 065
     Dates: start: 201511

REACTIONS (2)
  - Product use in unapproved indication [Unknown]
  - Off label use [Unknown]
